FAERS Safety Report 11198475 (Version 2)
Quarter: 2017Q4

REPORT INFORMATION
  Report Type: Spontaneous
  Country: US (occurrence: US)
  Receive Date: 20150618
  Receipt Date: 20171116
  Transmission Date: 20180320
  Serious: Yes (Hospitalization, Other)
  Sender: FDA-Public Use
  Company Number: US-AMGEN-USASP2015059013

PATIENT
  Age: 80 Year
  Sex: Male

DRUGS (13)
  1. SULFA [Concomitant]
     Active Substance: UNSPECIFIED INGREDIENT
  2. WARFARIN [Concomitant]
     Active Substance: WARFARIN
  3. FLOMAX [Concomitant]
     Active Substance: TAMSULOSIN HYDROCHLORIDE
  4. PROSCAR [Concomitant]
     Active Substance: FINASTERIDE
  5. XGEVA [Suspect]
     Active Substance: DENOSUMAB
     Indication: PROSTATE CANCER METASTATIC
     Dosage: 1.7 ML (120MG), Q4WK
     Route: 058
     Dates: start: 20140328, end: 20150311
  6. XTANDI [Suspect]
     Active Substance: ENZALUTAMIDE
     Indication: PROSTATE CANCER
     Dosage: 160 MG, QD
     Route: 048
     Dates: start: 20140617, end: 20150311
  7. MORNIFLUMATE [Concomitant]
     Active Substance: MORNIFLUMATE
  8. LASIX [Concomitant]
     Active Substance: FUROSEMIDE
  9. COMPAZINE [Concomitant]
     Active Substance: PROCHLORPERAZINE MALEATE
  10. XTANDI [Suspect]
     Active Substance: ENZALUTAMIDE
     Dosage: UNK
     Route: 048
     Dates: start: 201603
  11. LEVOTHYROXINE. [Concomitant]
     Active Substance: LEVOTHYROXINE
  12. ELIGARD [Concomitant]
     Active Substance: LEUPROLIDE ACETATE
  13. SIMVASTATIN. [Concomitant]
     Active Substance: SIMVASTATIN

REACTIONS (1)
  - Disease progression [Unknown]
